FAERS Safety Report 15318578 (Version 1)
Quarter: 2018Q3

REPORT INFORMATION
  Report Type: Spontaneous
  Country: US (occurrence: US)
  Receive Date: 20180817
  Receipt Date: 20180817
  Transmission Date: 20181010
  Serious: Yes (Life-Threatening)
  Sender: FDA-Public Use
  Company Number: None

PATIENT
  Age: 22 Year
  Sex: Male
  Weight: 96.75 kg

DRUGS (1)
  1. LOPERAMIDE 2MG [Suspect]
     Active Substance: LOPERAMIDE
     Indication: DIARRHOEA
     Dosage: ?          QUANTITY:200 TABLET(S);?
     Dates: start: 20151216, end: 20180428

REACTIONS (12)
  - Drug withdrawal syndrome [None]
  - Pulse abnormal [None]
  - Hyperhidrosis [None]
  - Drug dependence [None]
  - Incorrect drug administration duration [None]
  - Therapy change [None]
  - Restless legs syndrome [None]
  - Heart rate irregular [None]
  - Chills [None]
  - Vomiting [None]
  - Pain [None]
  - Heart rate increased [None]

NARRATIVE: CASE EVENT DATE: 20180503
